FAERS Safety Report 14134172 (Version 4)
Quarter: 2018Q1

REPORT INFORMATION
  Report Type: Spontaneous
  Country: EG (occurrence: EG)
  Receive Date: 20171027
  Receipt Date: 20180104
  Transmission Date: 20180508
  Serious: Yes (Other)
  Sender: FDA-Public Use
  Company Number: PHHY2017EG146208

PATIENT
  Age: 40 Year
  Sex: Female

DRUGS (3)
  1. BETADINE [Suspect]
     Active Substance: POVIDONE-IODINE
     Indication: INTRAOPERATIVE CARE
     Route: 047
  2. NEVXAL [Suspect]
     Active Substance: NEPAFENAC
     Indication: POSTOPERATIVE CARE
     Route: 065
  3. VIGAMOX [Suspect]
     Active Substance: MOXIFLOXACIN HYDROCHLORIDE
     Indication: PREOPERATIVE CARE
     Dosage: UNK
     Route: 047
     Dates: start: 20170827

REACTIONS (5)
  - Anterior chamber disorder [Recovered/Resolved]
  - Endophthalmitis [Unknown]
  - Vitritis [Recovered/Resolved]
  - Intraocular pressure increased [Unknown]
  - Product counterfeit [Unknown]

NARRATIVE: CASE EVENT DATE: 20170927
